FAERS Safety Report 24895840 (Version 2)
Quarter: 2025Q1

REPORT INFORMATION
  Report Type: Spontaneous
  Country: JP (occurrence: JP)
  Receive Date: 20250128
  Receipt Date: 20250131
  Transmission Date: 20250409
  Serious: Yes (Disabling)
  Sender: MERCK
  Company Number: JP-MSD-2412JPN001768J

PATIENT
  Age: 65 Year
  Sex: Male

DRUGS (3)
  1. CILASTATIN SODIUM\IMIPENEM [Suspect]
     Active Substance: CILASTATIN SODIUM\IMIPENEM
     Indication: Mycobacterium fortuitum infection
     Dosage: 0.25 GRAM, BID
     Route: 030
     Dates: start: 20240214, end: 20240321
  2. AMIKACIN SULFATE [Suspect]
     Active Substance: AMIKACIN SULFATE
     Indication: Mycobacterium fortuitum infection
     Route: 065
     Dates: start: 20240214, end: 202403
  3. LEVOFLOXACIN HEMIHYDRATE [Concomitant]
     Active Substance: LEVOFLOXACIN
     Indication: Mycobacterium fortuitum infection
     Route: 065
     Dates: start: 20240214, end: 202406

REACTIONS (2)
  - Inner ear disorder [Unknown]
  - Product use in unapproved indication [Unknown]

NARRATIVE: CASE EVENT DATE: 20240214
